FAERS Safety Report 4698455-0 (Version None)
Quarter: 2005Q2

REPORT INFORMATION
  Report Type: 
  Country: None (occurrence: None)
  Receive Date: 20050623
  Receipt Date: 20050610
  Transmission Date: 20051028
  Serious: Yes (Hospitalization)
  Sender: FDA-Public Use
  Company Number: SE-NOVOPROD-244741

PATIENT
  Age: 12 Year
  Sex: Male
  Weight: 32 kg

DRUGS (2)
  1. NORDITROPIN SIMPLEXX [Suspect]
     Indication: GROWTH HORMONE DEFICIENCY
     Dosage: 7 MG, UNK
     Dates: start: 20010627, end: 20020328
  2. NORDITROPIN SIMPLEXX [Suspect]
     Dosage: 5.6 MG, UNK
     Dates: start: 20020328

REACTIONS (1)
  - FRACTURE [None]
